FAERS Safety Report 5265448-4 (Version None)
Quarter: 2007Q1

REPORT INFORMATION
  Report Type: 
  Country: None (occurrence: None)
  Receive Date: 20061213
  Receipt Date: 20040927
  Transmission Date: 20070707
  Serious: Yes (Other)
  Sender: FDA-Public Use
  Company Number: 2004UW19608

PATIENT
  Age: 59 Year
  Sex: Male
  Weight: 102.0593 kg

DRUGS (5)
  1. IRESSA [Suspect]
     Indication: LUNG NEOPLASM MALIGNANT
     Dosage: 250 MG DAILY PO
     Route: 048
     Dates: start: 20040912
  2. ACTOS [Concomitant]
  3. THEOPHYLLINE [Concomitant]
  4. CLARITIN-D [Concomitant]
  5. PREDNISONE [Concomitant]

REACTIONS (2)
  - GROIN INFECTION [None]
  - LOCAL SWELLING [None]
